FAERS Safety Report 15802103 (Version 1)
Quarter: 2019Q1

REPORT INFORMATION
  Report Type: Spontaneous
  Country: AU (occurrence: AU)
  Receive Date: 20190109
  Receipt Date: 20190109
  Transmission Date: 20190417
  Serious: Yes (Death, Life-Threatening, Hospitalization, Other)
  Sender: FDA-Public Use
  Company Number: AU-BAUSCH-BL-2019-000172

PATIENT
  Age: 27 Year
  Sex: Male

DRUGS (3)
  1. PREDNISOLONE. [Suspect]
     Active Substance: PREDNISOLONE
     Indication: CROHN^S DISEASE
     Route: 065
  2. AZATHIOPRINE. [Suspect]
     Active Substance: AZATHIOPRINE
     Indication: CROHN^S DISEASE
     Route: 065
  3. AZATHIOPRINE. [Suspect]
     Active Substance: AZATHIOPRINE
     Dosage: DOSE REDUCED
     Route: 065

REACTIONS (23)
  - Pancreatic fibrosis [Not Recovered/Not Resolved]
  - Septic shock [Fatal]
  - Necrosis [Not Recovered/Not Resolved]
  - Lung abscess [Not Recovered/Not Resolved]
  - Ecchymosis [Not Recovered/Not Resolved]
  - Inflammation [Not Recovered/Not Resolved]
  - Dermatitis [Not Recovered/Not Resolved]
  - Clostridium difficile colitis [Not Recovered/Not Resolved]
  - Myositis [Not Recovered/Not Resolved]
  - Acute kidney injury [Not Recovered/Not Resolved]
  - Ileus paralytic [Not Recovered/Not Resolved]
  - Renal tubular necrosis [Not Recovered/Not Resolved]
  - Pancytopenia [Not Recovered/Not Resolved]
  - Pulmonary oedema [Not Recovered/Not Resolved]
  - Hepatosplenomegaly [Not Recovered/Not Resolved]
  - Diffuse alveolar damage [Not Recovered/Not Resolved]
  - Strongyloidiasis [Fatal]
  - Hepatitis cholestatic [Not Recovered/Not Resolved]
  - Respiratory failure [Not Recovered/Not Resolved]
  - Gastrointestinal haemorrhage [Fatal]
  - Encephalitis [Not Recovered/Not Resolved]
  - Bronchopleural fistula [Not Recovered/Not Resolved]
  - Cytomegalovirus infection [Not Recovered/Not Resolved]
